FAERS Safety Report 25648937 (Version 2)
Quarter: 2025Q4

REPORT INFORMATION
  Report Type: Spontaneous
  Country: EU (occurrence: EU)
  Receive Date: 20250806
  Receipt Date: 20251013
  Transmission Date: 20260117
  Serious: Yes (Other)
  Sender: NOVARTIS
  Company Number: EU-002147023-NVSC2025DE122415

PATIENT
  Age: 32 Year
  Sex: Female
  Weight: 85 kg

DRUGS (1)
  1. KESIMPTA [Suspect]
     Active Substance: OFATUMUMAB
     Indication: Multiple sclerosis
     Dosage: UNK
     Route: 058
     Dates: start: 20241010, end: 20250702

REACTIONS (6)
  - White blood cell count abnormal [Recovered/Resolved]
  - Neutrophil count abnormal [Recovered/Resolved]
  - Monocyte count abnormal [Unknown]
  - Lymphocyte count abnormal [Recovering/Resolving]
  - Basophil count abnormal [Recovered/Resolved]
  - Immature granulocyte count [Recovered/Resolved]

NARRATIVE: CASE EVENT DATE: 20250730
